FAERS Safety Report 14229330 (Version 4)
Quarter: 2018Q2

REPORT INFORMATION
  Report Type: Spontaneous
  Country: FR (occurrence: FR)
  Receive Date: 20171128
  Receipt Date: 20180521
  Transmission Date: 20180711
  Serious: Yes (Other)
  Sender: FDA-Public Use
  Company Number: FR-MERCK KGAA-2036117

PATIENT
  Age: 52 Year
  Sex: Female
  Weight: 85 kg

DRUGS (1)
  1. NOVOTHYROX [Suspect]
     Active Substance: LEVOTHYROXINE SODIUM
     Indication: HYPOTHYROIDISM
     Route: 048

REACTIONS (20)
  - Musculoskeletal pain [Not Recovered/Not Resolved]
  - Social avoidant behaviour [Recovering/Resolving]
  - Impaired work ability [Recovering/Resolving]
  - Fatigue [Recovering/Resolving]
  - Arthralgia [Not Recovered/Not Resolved]
  - Headache [Recovering/Resolving]
  - Dyspnoea [Not Recovered/Not Resolved]
  - Myalgia [Not Recovered/Not Resolved]
  - Epicondylitis [Recovering/Resolving]
  - Depression [Not Recovered/Not Resolved]
  - Impaired driving ability [Recovering/Resolving]
  - Dental cyst [Recovering/Resolving]
  - Hypertension [Recovering/Resolving]
  - Palpitations [Recovering/Resolving]
  - Amnesia [Recovering/Resolving]
  - Vertigo [Not Recovered/Not Resolved]
  - Insomnia [Recovering/Resolving]
  - Dizziness [Recovering/Resolving]
  - Pain in extremity [Not Recovered/Not Resolved]
  - Personal relationship issue [Recovering/Resolving]

NARRATIVE: CASE EVENT DATE: 201705
